FAERS Safety Report 21199152 (Version 2)
Quarter: 2022Q3

REPORT INFORMATION
  Report Type: Spontaneous
  Country: TW (occurrence: TW)
  Receive Date: 20220811
  Receipt Date: 20220921
  Transmission Date: 20221027
  Serious: Yes (Hospitalization, Other)
  Sender: FDA-Public Use
  Company Number: TW-Y-MABS THERAPEUTICS, INC.-EAP2022-TW-000786

PATIENT

DRUGS (21)
  1. DANYELZA [Suspect]
     Active Substance: NAXITAMAB-GQGK
     Indication: Neuroblastoma
     Dosage: CYCLE 1, DOSE 1
     Route: 042
     Dates: start: 20220713, end: 20220713
  2. DANYELZA [Suspect]
     Active Substance: NAXITAMAB-GQGK
     Dosage: CYCLE 1, DOSE 2
     Route: 042
     Dates: start: 20220722, end: 20220722
  3. DANYELZA [Suspect]
     Active Substance: NAXITAMAB-GQGK
     Dosage: CYCLE 1, DOSE 3
     Route: 042
     Dates: start: 20220726, end: 20220726
  4. DANYELZA [Suspect]
     Active Substance: NAXITAMAB-GQGK
     Dosage: CYCLE 1, DOSE 4
     Route: 042
     Dates: start: 20220728, end: 20220728
  5. GRANULOCYTE-MACROPHAGE COLONY-STIMULATING FACTOR [Concomitant]
     Active Substance: GRANULOCYTE-MACROPHAGE COLONY-STIMULATING FACTOR
     Indication: Neuroblastoma recurrent
     Dosage: 250 MCG/M2/DOSE
     Route: 030
     Dates: start: 20220724, end: 20220728
  6. IRINOTECAN [Concomitant]
     Active Substance: IRINOTECAN
     Indication: Neuroblastoma recurrent
     Dosage: 25 MG/M2/DAY
     Route: 042
     Dates: start: 20220712, end: 20220723
  7. TEMOZOLOMIDE [Concomitant]
     Active Substance: TEMOZOLOMIDE
     Indication: Neuroblastoma recurrent
     Dosage: 150 MG/M2/DAY
     Route: 048
     Dates: start: 20220712, end: 20220723
  8. PREGABALIN [Concomitant]
     Active Substance: PREGABALIN
     Indication: Premedication
  9. GRANISETRON [Concomitant]
     Active Substance: GRANISETRON
     Indication: Premedication
  10. EMEND [Concomitant]
     Active Substance: APREPITANT
     Indication: Premedication
  11. SODIUM CHLORIDE [Concomitant]
     Active Substance: SODIUM CHLORIDE
     Indication: Premedication
  12. METHYLPREDNISOLONE [Concomitant]
     Active Substance: METHYLPREDNISOLONE
     Indication: Premedication
  13. ACETAMINOPHEN [Concomitant]
     Active Substance: ACETAMINOPHEN
     Indication: Premedication
  14. ALLEGRA [Concomitant]
     Active Substance: FEXOFENADINE HYDROCHLORIDE
     Indication: Premedication
  15. DIPHENHYDRAMINE [Concomitant]
     Active Substance: DIPHENHYDRAMINE
     Indication: Premedication
  16. FAMOTIDINE [Concomitant]
     Active Substance: FAMOTIDINE
     Indication: Premedication
  17. MORPHINE [Concomitant]
     Active Substance: MORPHINE
     Indication: Premedication
  18. KETAMINE [Concomitant]
     Active Substance: KETAMINE
     Indication: Premedication
  19. LIDOCAINE [Concomitant]
     Active Substance: LIDOCAINE
     Indication: Premedication
  20. MORCASIN [Concomitant]
     Indication: Product used for unknown indication
  21. ROMIPLOSTIM [Concomitant]
     Active Substance: ROMIPLOSTIM
     Indication: Product used for unknown indication

REACTIONS (10)
  - Hepatotoxicity [Recovered/Resolved]
  - Thrombocytopenia [Recovered/Resolved]
  - Neutropenia [Not Recovered/Not Resolved]
  - Angioedema [Recovered/Resolved]
  - Hypotension [Recovered/Resolved]
  - Hypertension [Recovered/Resolved]
  - Rash [Recovered/Resolved]
  - Bronchospasm [Recovered/Resolved]
  - Rash [Recovered/Resolved]
  - Bronchospasm [Recovered/Resolved]

NARRATIVE: CASE EVENT DATE: 20220713
